FAERS Safety Report 26095329 (Version 1)
Quarter: 2025Q4

REPORT INFORMATION
  Report Type: Spontaneous
  Country: JP (occurrence: JP)
  Receive Date: 20251127
  Receipt Date: 20251127
  Transmission Date: 20260117
  Serious: Yes (Hospitalization)
  Sender: EMD SERONO INC
  Company Number: JP-Merck Healthcare KGaA-2025058985

PATIENT
  Age: 31 Year
  Sex: Female

DRUGS (2)
  1. GONAL-F [Suspect]
     Active Substance: FOLLITROPIN
     Indication: Infertility
     Dosage: SINGLE DOSE: 150; FREQUENCY: ONCE DAILY
     Dates: start: 20250829, end: 20250918
  2. HUMAN CHORIONIC GONADOTROPIN [Suspect]
     Active Substance: GONADOTROPHIN, CHORIONIC
     Indication: Ovulation induction

REACTIONS (3)
  - Dehydration [Recovering/Resolving]
  - Ovarian hyperstimulation syndrome [Recovered/Resolved]
  - Oliguria [Recovering/Resolving]

NARRATIVE: CASE EVENT DATE: 20250919
